FAERS Safety Report 7155868-5 (Version None)
Quarter: 2010Q4

REPORT INFORMATION
  Report Type: 
  Country: None (occurrence: None)
  Receive Date: 20101214
  Receipt Date: 20101130
  Transmission Date: 20110411
  Serious: Yes (Hospitalization)
  Sender: FDA-Public Use
  Company Number: JP-PFIZER INC-2010140796

PATIENT
  Age: 69 Year
  Sex: Female
  Weight: 43 kg

DRUGS (11)
  1. CAMPTOSAR [Suspect]
     Indication: COLON CANCER
     Dosage: 180 MG/M2, UNK
     Route: 041
     Dates: start: 20100811, end: 20101119
  2. LEVOLEUCOVORIN CALCIUM [Suspect]
     Indication: COLON CANCER
     Dosage: 200 MG/M2, UNK
     Route: 041
     Dates: start: 20100811, end: 20101119
  3. FLUOROURACIL [Suspect]
     Indication: COLON CANCER
     Dosage: 400 MG/M2, UNK
     Route: 040
     Dates: start: 20100811, end: 20101119
  4. FLUOROURACIL [Suspect]
     Dosage: 2400 MG/M2, UNK
     Route: 041
     Dates: start: 20100811, end: 20101119
  5. AVASTIN [Suspect]
     Indication: COLON CANCER
     Dosage: 5 MG/KG, UNK
     Route: 041
     Dates: start: 20100811, end: 20101119
  6. MAGNESIUM OXIDE [Concomitant]
     Indication: CONSTIPATION
     Dosage: 1 G, UNK
     Route: 048
  7. DAI-KENCHU-TO [Concomitant]
     Indication: CONSTIPATION
     Dosage: 2.5 G, 3X/DAY
     Route: 048
  8. PYDOXAL [Concomitant]
     Indication: NEUROPATHY PERIPHERAL
     Dosage: 10 MG, 3X/DAY
     Route: 048
  9. SELBEX [Concomitant]
     Indication: DUODENAL ULCER
     Dosage: 50 MG, 3X/DAY
     Route: 048
  10. LOXOPROFEN [Concomitant]
     Dosage: 60 MG, UNK
     Route: 048
     Dates: start: 20101023
  11. TEPRENONE [Concomitant]
     Dosage: 50 MG, UNK
     Route: 048
     Dates: start: 20101023

REACTIONS (3)
  - ESCHERICHIA INFECTION [None]
  - SEPSIS [None]
  - URINARY TRACT INFECTION [None]
